FAERS Safety Report 8615298-3 (Version None)
Quarter: 2012Q3

REPORT INFORMATION
  Report Type: 
  Country: None (occurrence: None)
  Receive Date: 20120823
  Receipt Date: 20120815
  Transmission Date: 20120928
  Serious: Yes (Other)
  Sender: FDA-Public Use
  Company Number: US-ABBOTT-12P-163-0969271-00

PATIENT
  Age: 30 Year
  Sex: Male

DRUGS (1)
  1. HUMIRA [Suspect]
     Indication: CROHN'S DISEASE
     Dates: start: 20100401

REACTIONS (8)
  - HOMICIDAL IDEATION [None]
  - RASH [None]
  - BACK PAIN [None]
  - CHROMATURIA [None]
  - PSYCHOTIC DISORDER [None]
  - FLANK PAIN [None]
  - CONTUSION [None]
  - GENITAL RASH [None]
